FAERS Safety Report 12711631 (Version 3)
Quarter: 2017Q1

REPORT INFORMATION
  Report Type: Report from Study
  Country: US (occurrence: US)
  Receive Date: 20160902
  Receipt Date: 20170329
  Transmission Date: 20170428
  Serious: Yes (Hospitalization)
  Sender: FDA-Public Use
  Company Number: PHHO2016US012688

PATIENT
  Age: 37 Year
  Sex: Male
  Weight: 56.2 kg

DRUGS (11)
  1. TOBI PODHALER [Suspect]
     Active Substance: TOBRAMYCIN
     Dosage: 112 OT, BID
     Route: 055
     Dates: start: 20160701, end: 20160801
  2. AZTREONAM. [Suspect]
     Active Substance: AZTREONAM
     Dosage: 75 MG, BID
     Route: 055
     Dates: start: 20170119
  3. TOBI PODHALER [Suspect]
     Active Substance: TOBRAMYCIN
     Dosage: 300 MG, BID
     Route: 055
     Dates: start: 20160530, end: 20160604
  4. TOBI PODHALER [Suspect]
     Active Substance: TOBRAMYCIN
     Dosage: 112 OT, BID
     Route: 055
     Dates: start: 20160901, end: 20161001
  5. TOBI PODHALER [Suspect]
     Active Substance: TOBRAMYCIN
     Dosage: 112 OT, BID
     Route: 055
     Dates: start: 20160501, end: 20160601
  6. AZTREONAM. [Suspect]
     Active Substance: AZTREONAM
     Indication: PRODUCT USED FOR UNKNOWN INDICATION
     Dosage: 75 MG, TID
     Route: 055
     Dates: start: 20160620, end: 20160701
  7. TOBI PODHALER [Suspect]
     Active Substance: TOBRAMYCIN
     Indication: CYSTIC FIBROSIS
     Dosage: 112 OT, BID
     Route: 055
     Dates: start: 20160301, end: 20160401
  8. TOBI PODHALER [Suspect]
     Active Substance: TOBRAMYCIN
     Dosage: 300 MG, BID
     Route: 055
     Dates: end: 201612
  9. AZTREONAM. [Suspect]
     Active Substance: AZTREONAM
     Dosage: 75 MG, BID
     Route: 055
     Dates: start: 201601, end: 20160108
  10. ALBUTEROL. [Concomitant]
     Active Substance: ALBUTEROL
     Indication: INFECTIVE PULMONARY EXACERBATION OF CYSTIC FIBROSIS
     Dosage: 2.5 ML, PRN
     Route: 055
  11. ALBUTEROL. [Concomitant]
     Active Substance: ALBUTEROL
     Indication: CYSTIC FIBROSIS LUNG
     Dosage: 2.5 ML, QID
     Route: 065
     Dates: start: 20160825

REACTIONS (11)
  - Diarrhoea [Unknown]
  - Decreased appetite [Unknown]
  - Dyspnoea [Unknown]
  - Pyrexia [Unknown]
  - Headache [Unknown]
  - Musculoskeletal chest pain [Unknown]
  - Fatigue [Unknown]
  - Infective pulmonary exacerbation of cystic fibrosis [Recovering/Resolving]
  - Cough [Unknown]
  - Sputum increased [Unknown]
  - Weight decreased [Unknown]

NARRATIVE: CASE EVENT DATE: 20160825
